FAERS Safety Report 13275746 (Version 1)
Quarter: 2017Q1

REPORT INFORMATION
  Report Type: Spontaneous
  Country: US (occurrence: US)
  Receive Date: 20170227
  Receipt Date: 20170227
  Transmission Date: 20170428
  Serious: No
  Sender: FDA-Public Use
  Company Number: None

PATIENT
  Age: 15 Year
  Sex: Male
  Weight: 52.65 kg

DRUGS (10)
  1. RISPERIDONE. [Suspect]
     Active Substance: RISPERIDONE
     Indication: ANXIETY
     Dosage: ?          QUANTITY:1 TABLET(S);?
     Route: 048
  2. RISPERIDONE. [Suspect]
     Active Substance: RISPERIDONE
     Indication: OBSESSIVE-COMPULSIVE DISORDER
     Dosage: ?          QUANTITY:1 TABLET(S);?
     Route: 048
  3. FLUOXETINE [Concomitant]
     Active Substance: FLUOXETINE HYDROCHLORIDE
  4. DEXTROAMPHET SACCHARAT, AMPHET ASPARTATE, DEXTROAMPHET SULFATE AND AMPHET SULFAT [Concomitant]
     Active Substance: AMPHETAMINE ASPARTATE\AMPHETAMINE SULFATE\DEXTROAMPHETAMINE SACCHARATE\DEXTROAMPHETAMINE SULFATE
  5. ZALEPLON. [Concomitant]
     Active Substance: ZALEPLON
  6. BUPROPION 24-HOUR EXGTENDED-RELEASE [Concomitant]
  7. FISH OIL [Concomitant]
     Active Substance: FISH OIL
  8. RISPERIDONE. [Suspect]
     Active Substance: RISPERIDONE
     Indication: DEPRESSION
     Dosage: ?          QUANTITY:1 TABLET(S);?
     Route: 048
  9. QUETIAPINE EXTENDED-RELEASE (XR) [Suspect]
     Active Substance: QUETIAPINE
  10. QUETIAPINE IMMEDIATE-RELEASE [Concomitant]

REACTIONS (6)
  - Dizziness [None]
  - Fatigue [None]
  - Insomnia [None]
  - Condition aggravated [None]
  - Gait disturbance [None]
  - Restless legs syndrome [None]

NARRATIVE: CASE EVENT DATE: 20140718
